FAERS Safety Report 5237529-2 (Version None)
Quarter: 2007Q1

REPORT INFORMATION
  Report Type: 
  Country: None (occurrence: None)
  Receive Date: 20070213
  Receipt Date: 20070202
  Transmission Date: 20070707
  Serious: Yes (Life-Threatening, Hospitalization)
  Sender: FDA-Public Use
  Company Number: JP-PFIZER INC-2007003558

PATIENT
  Sex: Female
  Weight: 55.3 kg

DRUGS (6)
  1. ALDACTONE [Suspect]
     Indication: DIABETIC NEPHROPATHY
     Dosage: DAILY DOSE:25MG
     Route: 048
  2. BLOPRESS [Suspect]
     Route: 048
     Dates: end: 20060901
  3. AMARYL [Concomitant]
     Route: 048
  4. ASPIRIN [Concomitant]
     Route: 048
     Dates: end: 20060901
  5. ALFAROL [Concomitant]
     Route: 048
     Dates: end: 20060901
  6. CALCIUM LACTATE [Concomitant]
     Route: 048
     Dates: end: 20060901

REACTIONS (3)
  - CARDIAC ARREST [None]
  - HYPERKALAEMIA [None]
  - METABOLIC ACIDOSIS [None]
